FAERS Safety Report 25927860 (Version 2)
Quarter: 2025Q4

REPORT INFORMATION
  Report Type: Spontaneous
  Country: BR (occurrence: BR)
  Receive Date: 20251016
  Receipt Date: 20251103
  Transmission Date: 20260117
  Serious: Yes (Other)
  Sender: BIOGEN
  Company Number: BR-BIOGEN-2025BI01326942

PATIENT
  Age: 34 Year
  Sex: Female
  Weight: 90 kg

DRUGS (6)
  1. AVONEX [Suspect]
     Active Substance: INTERFERON BETA-1A
     Indication: Multiple sclerosis
     Dates: start: 201304, end: 2015
  2. AVONEX [Suspect]
     Active Substance: INTERFERON BETA-1A
  3. AVONEX [Suspect]
     Active Substance: INTERFERON BETA-1A
  4. AVONEX [Suspect]
     Active Substance: INTERFERON BETA-1A
  5. AVONEX [Suspect]
     Active Substance: INTERFERON BETA-1A
     Route: 030
     Dates: start: 2016, end: 2017
  6. OXYBUTYNIN CHLORIDE [Concomitant]
     Active Substance: OXYBUTYNIN CHLORIDE
     Indication: Micturition urgency

REACTIONS (4)
  - Multiple sclerosis relapse [Unknown]
  - Zika virus infection [Unknown]
  - Maternal exposure during pregnancy [Recovered/Resolved]
  - Premature delivery [Recovered/Resolved]

NARRATIVE: CASE EVENT DATE: 20160101
